FAERS Safety Report 8363582-3 (Version None)
Quarter: 2012Q2

REPORT INFORMATION
  Report Type: 
  Country: None (occurrence: None)
  Receive Date: 20120516
  Receipt Date: 20120507
  Transmission Date: 20120825
  Serious: Yes (Other)
  Sender: FDA-Public Use
  Company Number: ES-ASTRAZENECA-2012SE29522

PATIENT
  Age: 68 Year
  Sex: Female

DRUGS (5)
  1. OMEPRAZOLE [Concomitant]
     Indication: PROPHYLAXIS
     Route: 048
     Dates: start: 20080317
  2. ZOLPIDEM [Concomitant]
     Route: 048
     Dates: start: 20070101
  3. NOCTAMID [Concomitant]
     Indication: INSOMNIA
     Route: 048
     Dates: start: 20040101
  4. ARIMIDEX [Suspect]
     Indication: BREAST CANCER
     Route: 048
     Dates: start: 20071114
  5. CALCIUM CARBONATE [Concomitant]
     Indication: PROPHYLAXIS
     Route: 048
     Dates: start: 20071114

REACTIONS (1)
  - SJOGREN'S SYNDROME [None]
